FAERS Safety Report 14700085 (Version 1)
Quarter: 2018Q1

REPORT INFORMATION
  Report Type: Spontaneous
  Country: US (occurrence: US)
  Receive Date: 20180330
  Receipt Date: 20180330
  Transmission Date: 20180509
  Serious: Yes (Other)
  Sender: FDA-Public Use
  Company Number: US-PERRIGO-18US003399

PATIENT
  Age: 2 Year
  Sex: Female
  Weight: 16 kg

DRUGS (3)
  1. LORATADINE. [Suspect]
     Active Substance: LORATADINE
     Indication: ACCIDENTAL EXPOSURE TO PRODUCT BY CHILD
     Dosage: UNKNOWN (UP TO 930 MG), SINGLE
     Route: 048
     Dates: start: 20180218, end: 20180218
  2. BUDESONIDE. [Concomitant]
     Active Substance: BUDESONIDE
     Indication: BRONCHIOLITIS
     Dosage: UNK
     Route: 065
     Dates: start: 2017
  3. ALBUTEROL                          /00139501/ [Concomitant]
     Active Substance: ALBUTEROL
     Indication: BRONCHIOLITIS
     Dosage: UNK PRN
     Route: 065
     Dates: start: 2017

REACTIONS (2)
  - Heart rate increased [Recovered/Resolved]
  - Accidental exposure to product by child [Recovered/Resolved]

NARRATIVE: CASE EVENT DATE: 20180218
